FAERS Safety Report 7734275-8 (Version None)
Quarter: 2011Q3

REPORT INFORMATION
  Report Type: 
  Country: None (occurrence: None)
  Receive Date: 20110901
  Receipt Date: 20110817
  Transmission Date: 20111222
  Serious: Yes (Other)
  Sender: FDA-Public Use
  Company Number: US-1187233

PATIENT
  Age: 62 Year
  Sex: Male
  Weight: 140.5 kg

DRUGS (20)
  1. BSS [Suspect]
     Indication: CATARACT OPERATION
     Dosage: (500 ML INTRAOCULAR)
     Route: 031
     Dates: start: 20110713, end: 20110713
  2. METHOCARBAMOL [Concomitant]
  3. ACETAZOLAMIDE [Concomitant]
  4. EPINEPHRINE [Concomitant]
  5. HUMINSULIN NORMAL [Concomitant]
  6. DICLOFENAC SODIUM [Concomitant]
  7. FUROSEMIDE [Concomitant]
  8. VARDENAFIL HYDROCHLORIDE (LEVITRA) [Concomitant]
  9. CLOPIDOGREL BISULFATE [Concomitant]
  10. ASPIRIN [Concomitant]
  11. PREDNISOLONE ACETATE [Concomitant]
  12. OMEPRAZOLE [Concomitant]
  13. ACETAZOLAMIDE [Concomitant]
  14. LISINOPRIL [Concomitant]
  15. TOPIRAMATE [Concomitant]
  16. CARVEDILOL [Concomitant]
  17. HYDROCODONE BITARTRATE AND ACETAMINOPHEN [Concomitant]
  18. INSULIN HM NPH [Concomitant]
  19. SPIRONOLACTONE [Concomitant]
  20. DOXAZOSIN MESYLATE [Concomitant]

REACTIONS (1)
  - TOXIC ANTERIOR SEGMENT SYNDROME [None]
